FAERS Safety Report 4760149-0 (Version None)
Quarter: 2005Q3

REPORT INFORMATION
  Report Type: 
  Country: None (occurrence: None)
  Receive Date: 20050831
  Receipt Date: 20050831
  Transmission Date: 20060218
  Serious: Yes (Death)
  Sender: FDA-Public Use
  Company Number: None

PATIENT
  Age: 32 Year
  Sex: Male
  Weight: 87.2 kg

DRUGS (2)
  1. BUSULFAN [Suspect]
     Indication: CHEMOTHERAPY
     Dosage: 52MG
     Dates: start: 20030603, end: 20030606
  2. CYTOXAN [Suspect]
     Indication: CHRONIC MYELOID LEUKAEMIA
     Dosage: 4920MG
     Dates: start: 20030607, end: 20030609

REACTIONS (2)
  - GRAFT COMPLICATION [None]
  - GRAFT VERSUS HOST DISEASE [None]
